FAERS Safety Report 24366643 (Version 1)
Quarter: 2024Q3

REPORT INFORMATION
  Report Type: Spontaneous
  Country: US (occurrence: US)
  Receive Date: 20240926
  Receipt Date: 20240926
  Transmission Date: 20241017
  Serious: No
  Sender: BAYER
  Company Number: US-BAYER-2024A134233

PATIENT

DRUGS (1)
  1. CLARITIN LIQUI-GELS [Suspect]
     Active Substance: LORATADINE
     Indication: Pain
     Dosage: 1 DF
     Route: 048

REACTIONS (2)
  - Expired product administered [Unknown]
  - Product use in unapproved indication [None]
